FAERS Safety Report 18740113 (Version 1)
Quarter: 2021Q1

REPORT INFORMATION
  Report Type: Spontaneous
  Country: US (occurrence: US)
  Receive Date: 20210114
  Receipt Date: 20210114
  Transmission Date: 20210419
  Serious: No
  Sender: FDA-Public Use
  Company Number: US-ELI_LILLY_AND_COMPANY-US202012010392

PATIENT
  Age: 45 Year
  Sex: Female

DRUGS (1)
  1. BAMLANIVIMAB. [Suspect]
     Active Substance: BAMLANIVIMAB
     Indication: COVID-19
     Dosage: UNK UNK, SINGLE
     Route: 042
     Dates: start: 20201215

REACTIONS (7)
  - Hyperhidrosis [Unknown]
  - Feeling of despair [Unknown]
  - Chills [Unknown]
  - Sleep disorder [Unknown]
  - Decreased appetite [Unknown]
  - Pyrexia [Unknown]
  - Nausea [Unknown]
